FAERS Safety Report 15599499 (Version 1)
Quarter: 2018Q4

REPORT INFORMATION
  Report Type: Spontaneous
  Country: FR (occurrence: FR)
  Receive Date: 20181108
  Receipt Date: 20181108
  Transmission Date: 20190205
  Serious: Yes (Hospitalization)
  Sender: FDA-Public Use
  Company Number: PHHY2018FR149257

PATIENT
  Age: 60 Year
  Sex: Male
  Weight: 65 kg

DRUGS (2)
  1. RAMIPRIL. [Suspect]
     Active Substance: RAMIPRIL
     Indication: LUPUS NEPHRITIS
     Dosage: 5 MG, QD
     Route: 048
     Dates: start: 20140717, end: 20150525
  2. IRBESARTAN. [Suspect]
     Active Substance: IRBESARTAN
     Indication: LUPUS NEPHRITIS
     Dosage: 75 MG, QD
     Route: 048
     Dates: end: 20150525

REACTIONS (1)
  - Acute kidney injury [Recovered/Resolved]

NARRATIVE: CASE EVENT DATE: 20150525
